FAERS Safety Report 4695664-1 (Version None)
Quarter: 2005Q2

REPORT INFORMATION
  Report Type: 
  Country: None (occurrence: None)
  Receive Date: 20050617
  Receipt Date: 20050617
  Transmission Date: 20051028
  Serious: No
  Sender: FDA-Public Use
  Company Number: None

PATIENT
  Sex: Female

DRUGS (3)
  1. ENDOSOL EXTRA [Suspect]
     Indication: EYE IRRIGATION
     Dosage: 500ML   ONCE   031   (DURATION: ONE TIME)
     Dates: start: 20050502
  2. VANCOMYCIN [Concomitant]
  3. EPINEPHRINE [Concomitant]

REACTIONS (4)
  - EYE EXCISION [None]
  - EYE INFECTION FUNGAL [None]
  - EYE OPERATION COMPLICATION [None]
  - PHARMACEUTICAL PRODUCT COMPLAINT [None]
